FAERS Safety Report 5110835-8 (Version None)
Quarter: 2006Q3

REPORT INFORMATION
  Report Type: 
  Country: None (occurrence: None)
  Receive Date: 20060919
  Receipt Date: 20060912
  Transmission Date: 20061208
  Serious: Yes (Hospitalization, Other)
  Sender: FDA-Public Use
  Company Number: FR-2006-014105

PATIENT
  Age: 34 Year
  Sex: Female
  Weight: 72 kg

DRUGS (1)
  1. MIRENA [Suspect]
     Indication: CONTRACEPTION
     Dosage: 20 UG/DAY, CONT, INTRA-UTERINE
     Route: 015
     Dates: start: 20050408, end: 20060522

REACTIONS (9)
  - ABORTION SPONTANEOUS INCOMPLETE [None]
  - AMENORRHOEA [None]
  - ANAEMIA [None]
  - BENIGN HYDATIDIFORM MOLE [None]
  - DRUG INEFFECTIVE [None]
  - GESTATIONAL TROPHOBLASTIC DETACHMENT [None]
  - HAEMORRHAGE [None]
  - METRORRHAGIA [None]
  - PREGNANCY WITH CONTRACEPTIVE DEVICE [None]
